FAERS Safety Report 26044307 (Version 1)
Quarter: 2025Q4

REPORT INFORMATION
  Report Type: Spontaneous
  Country: GB (occurrence: GB)
  Receive Date: 20251114
  Receipt Date: 20251114
  Transmission Date: 20260119
  Serious: Yes (Hospitalization, Other)
  Sender: MARKSANS PHARMA LIMITED
  Company Number: UK-MARKSANS PHARMA LIMITED-MPL202500111

PATIENT

DRUGS (1)
  1. ACETAMINOPHEN [Suspect]
     Active Substance: ACETAMINOPHEN
     Indication: Product used for unknown indication
     Dosage: UNK
     Route: 048

REACTIONS (5)
  - Circulatory collapse [Unknown]
  - Blood pressure decreased [Unknown]
  - Illness [Unknown]
  - Product taste abnormal [Unknown]
  - Product odour abnormal [Unknown]
